FAERS Safety Report 19745193 (Version 3)
Quarter: 2022Q2

REPORT INFORMATION
  Report Type: Spontaneous
  Country: US (occurrence: US)
  Receive Date: 20210825
  Receipt Date: 20220425
  Transmission Date: 20220721
  Serious: Yes (Death, Hospitalization, Other)
  Sender: FDA-Public Use
  Company Number: US-PFIZER INC-202101057625

PATIENT
  Age: 75 Year
  Sex: Female

DRUGS (2)
  1. IBRANCE [Suspect]
     Active Substance: PALBOCICLIB
     Indication: Breast cancer female
     Dosage: 125 MG
  2. IBRANCE [Suspect]
     Active Substance: PALBOCICLIB
     Dosage: 125 MG
     Dates: start: 20210630

REACTIONS (7)
  - Death [Fatal]
  - Concussion [Unknown]
  - Foot fracture [Unknown]
  - Fall [Unknown]
  - Joint injury [Unknown]
  - Neoplasm progression [Unknown]
  - Amnesia [Not Recovered/Not Resolved]
